FAERS Safety Report 20013909 (Version 2)
Quarter: 2021Q4

REPORT INFORMATION
  Report Type: Spontaneous
  Country: FR (occurrence: FR)
  Receive Date: 20211029
  Receipt Date: 20211103
  Transmission Date: 20220303
  Serious: Yes (Hospitalization)
  Sender: FDA-Public Use
  Company Number: None

PATIENT
  Age: 61 Year
  Sex: Female

DRUGS (9)
  1. METHYLPREDNISOLONE [Suspect]
     Active Substance: METHYLPREDNISOLONE
     Indication: Premedication
     Dosage: 60 MILLIGRAM, TOTAL
     Route: 042
     Dates: start: 20210713, end: 20210713
  2. CISPLATIN [Suspect]
     Active Substance: CISPLATIN
     Indication: Lung adenocarcinoma
     Dosage: 125 MILLIGRAM, TOTAL
     Route: 042
     Dates: start: 20210713, end: 20210713
  3. ONDANSETRON [Suspect]
     Active Substance: ONDANSETRON
     Indication: Premedication
     Dosage: 8 MILLIGRAM, TOTAL
     Route: 042
     Dates: start: 20210713, end: 20210713
  4. PANTOPRAZOLE [Suspect]
     Active Substance: PANTOPRAZOLE
     Indication: Product used for unknown indication
     Dosage: 40 MILLIGRAM, TOTAL
     Route: 048
     Dates: start: 20210713, end: 20210713
  5. PEMETREXED [Suspect]
     Active Substance: PEMETREXED
     Indication: Lung adenocarcinoma
     Dosage: 850 MILLIGRAM, TOTAL
     Route: 042
     Dates: start: 20210713, end: 20210713
  6. EMEND [Suspect]
     Active Substance: APREPITANT
     Indication: Premedication
     Dosage: 1 DOSAGE FORM, TOTAL
     Route: 048
     Dates: start: 20210713, end: 20210713
  7. FUROSEMIDE [Suspect]
     Active Substance: FUROSEMIDE
     Indication: Acute respiratory failure
     Dosage: 40 MILLIGRAM, TOTAL
     Route: 042
     Dates: start: 20210713, end: 20210713
  8. AUGMENTIN [Suspect]
     Active Substance: AMOXICILLIN\CLAVULANATE POTASSIUM
     Indication: Product used for unknown indication
     Dosage: 3 DOSAGE FORM, TOTAL
     Route: 048
     Dates: start: 20210713, end: 20210713
  9. KEYTRUDA [Suspect]
     Active Substance: PEMBROLIZUMAB
     Indication: Lung adenocarcinoma
     Dosage: 200 MILLIGRAM, TOTAL
     Route: 042
     Dates: start: 20210713, end: 20210713

REACTIONS (2)
  - Acute respiratory failure [Recovered/Resolved]
  - Rash pruritic [Recovered/Resolved]

NARRATIVE: CASE EVENT DATE: 20210713
